FAERS Safety Report 21698016 (Version 1)
Quarter: 2022Q4

REPORT INFORMATION
  Report Type: Spontaneous
  Country: US (occurrence: US)
  Receive Date: 20221208
  Receipt Date: 20221208
  Transmission Date: 20230113
  Serious: No
  Sender: FDA-Public Use
  Company Number: US-002147023-NVSC2022US284374

PATIENT

DRUGS (3)
  1. OMNITROPE [Suspect]
     Active Substance: SOMATROPIN
     Indication: Product used for unknown indication
     Dosage: 5.8 MG, (2 VIALS PER WEEK) FROM LAST 6 WEEKS
     Route: 065
  2. WINSTROL [Concomitant]
     Active Substance: STANOZOLOL
     Indication: Product used for unknown indication
     Dosage: 50 MG, QD (BEEN TAKING THIS FOR 3 WEEKS)
     Route: 065
  3. DECCAFLAM [Concomitant]
     Indication: Product used for unknown indication
     Dosage: 0.66 CC PER WEEK FROM LAST 3 WEEKS
     Route: 065

REACTIONS (1)
  - Therapy non-responder [Unknown]
